FAERS Safety Report 17536536 (Version 1)
Quarter: 2020Q1

REPORT INFORMATION
  Report Type: Spontaneous
  Country: US (occurrence: US)
  Receive Date: 20200304
  Receipt Date: 20200304
  Transmission Date: 20200409
  Serious: Yes (Hospitalization)
  Sender: FDA-Public Use
  Company Number: None

PATIENT
  Sex: Female

DRUGS (18)
  1. SMZ/TMP DS [Concomitant]
     Active Substance: SULFAMETHOXAZOLE\TRIMETHOPRIM
  2. ALPRAZOLAM. [Concomitant]
     Active Substance: ALPRAZOLAM
  3. VENTOLIN HFA AER [Concomitant]
  4. PREDNISONE. [Concomitant]
     Active Substance: PREDNISONE
  5. FLUCONAZOLE. [Concomitant]
     Active Substance: FLUCONAZOLE
  6. SPIRIVA [Concomitant]
     Active Substance: TIOTROPIUM BROMIDE MONOHYDRATE
  7. TOBRAMYCIN 300MG/5MLB=NEB (20ML=4NEB) [Suspect]
     Active Substance: TOBRAMYCIN
     Indication: BRONCHIECTASIS
     Dosage: ?          OTHER DOSE:1 VIAL (300MG);OTHER ROUTE:INHALATION VS NEB?
     Route: 055
     Dates: start: 20191216
  8. DEXTROAMPHET SACCHARAT, AMPHET ASPARTATE, DEXTROAMPHET SULFATE AND AMPHET SULFAT [Concomitant]
     Active Substance: AMPHETAMINE ASPARTATE\AMPHETAMINE SULFATE\DEXTROAMPHETAMINE SACCHARATE\DEXTROAMPHETAMINE SULFATE
  9. MUPIROCIN. [Concomitant]
     Active Substance: MUPIROCIN
  10. SOD CHLORIDE [Concomitant]
  11. MYCOPHENOLATE [Concomitant]
     Active Substance: MYCOPHENOLIC ACID
  12. ALBUTEROL AER HFA [Concomitant]
  13. ADVAIR DISKU AER [Concomitant]
  14. TOBRAMYCIN 300MG/5MLB=NEB (20ML=4NEB) [Suspect]
     Active Substance: TOBRAMYCIN
     Indication: BACTERIAL INFECTION
     Dosage: ?          OTHER DOSE:1 VIAL (300MG);OTHER ROUTE:INHALATION VS NEB?
     Route: 055
     Dates: start: 20191216
  15. ONDANSETRON [Concomitant]
     Active Substance: ONDANSETRON
  16. OROFLOXACIN [Concomitant]
  17. CIPROFLOXACIN. [Concomitant]
     Active Substance: CIPROFLOXACIN
  18. DOXYCYCL HYC [Concomitant]

REACTIONS (2)
  - Scar [None]
  - Pneumonia [None]

NARRATIVE: CASE EVENT DATE: 20200107
